FAERS Safety Report 5759925-7 (Version None)
Quarter: 2008Q2

REPORT INFORMATION
  Report Type: 
  Country: None (occurrence: None)
  Receive Date: 20080605
  Receipt Date: 20080530
  Transmission Date: 20081010
  Serious: Yes (Hospitalization)
  Sender: FDA-Public Use
  Company Number: GB-MERCK-0805GBR00066

PATIENT
  Age: 59 Year
  Sex: Male

DRUGS (7)
  1. ZOCOR [Suspect]
     Indication: CEREBROVASCULAR ACCIDENT PROPHYLAXIS
     Route: 048
     Dates: start: 20060126, end: 20060201
  2. ZOCOR [Suspect]
     Route: 048
     Dates: start: 20070219, end: 20070320
  3. ZOCOR [Suspect]
     Route: 048
     Dates: start: 20080407, end: 20080410
  4. ZOCOR [Suspect]
     Indication: BLOOD CHOLESTEROL INCREASED
     Route: 048
     Dates: start: 20060126, end: 20060201
  5. ZOCOR [Suspect]
     Route: 048
     Dates: start: 20070219, end: 20070320
  6. ZOCOR [Suspect]
     Route: 048
     Dates: start: 20080407, end: 20080410
  7. CLONAZEPAM [Concomitant]
     Indication: MUSCLE TWITCHING
     Route: 065
     Dates: start: 20060929

REACTIONS (2)
  - CHRONIC FATIGUE SYNDROME [None]
  - DRUG INTOLERANCE [None]
